FAERS Safety Report 5691016-6 (Version None)
Quarter: 2008Q2

REPORT INFORMATION
  Report Type: 
  Country: None (occurrence: None)
  Receive Date: 20080401
  Receipt Date: 20080321
  Transmission Date: 20081010
  Serious: Yes (Death)
  Sender: FDA-Public Use
  Company Number: US-PFIZER INC-2007077442

PATIENT
  Sex: Female

DRUGS (4)
  1. VERAPAMIL HYDROCHLORIDE [Suspect]
  2. GEMFIBROZIL [Suspect]
  3. ZYRTEC [Suspect]
  4. ARICEPT [Suspect]

REACTIONS (1)
  - DEATH [None]
